FAERS Safety Report 18165863 (Version 1)
Quarter: 2020Q3

REPORT INFORMATION
  Report Type: Spontaneous
  Country: JP (occurrence: JP)
  Receive Date: 20200818
  Receipt Date: 20200818
  Transmission Date: 20201103
  Serious: Yes (Other)
  Sender: FDA-Public Use
  Company Number: JP-PFIZER INC-2020318176

PATIENT
  Age: 43 Year
  Sex: Male

DRUGS (1)
  1. LYRICA [Suspect]
     Active Substance: PREGABALIN
     Dosage: UNK
     Dates: start: 201910, end: 201910

REACTIONS (2)
  - Drug eruption [Unknown]
  - Erythema multiforme [Unknown]

NARRATIVE: CASE EVENT DATE: 201910
